FAERS Safety Report 8602217-9 (Version None)
Quarter: 2012Q3

REPORT INFORMATION
  Report Type: 
  Country: None (occurrence: None)
  Receive Date: 20120817
  Receipt Date: 20120808
  Transmission Date: 20120928
  Serious: Yes (Life-Threatening)
  Sender: FDA-Public Use
  Company Number: JP-PFIZER INC-2012139051

PATIENT
  Age: 82 Year
  Sex: Male
  Weight: 50.3 kg

DRUGS (11)
  1. TAMSULOSIN HCL [Suspect]
     Dosage: 0.2 MG, 1X/DAY
     Dates: start: 20061108, end: 20070308
  2. AMLODIPINE [Concomitant]
     Dosage: 2.5 MG, 1X/DAY
     Dates: start: 20060117, end: 20070917
  3. VFEND [Suspect]
     Indication: BRONCHOPULMONARY ASPERGILLOSIS
     Dosage: 200 MG, 3X/DAY
     Route: 048
     Dates: start: 20060830, end: 20111107
  4. TRICHLORMETHIAZIDE [Concomitant]
     Dosage: 2 MG, 1X/DAY
     Dates: start: 20060117
  5. LUDIOMIL [Concomitant]
     Dosage: 25 MG, 1X/DAY
     Dates: start: 20060117
  6. VFEND [Suspect]
     Dosage: UNK
     Route: 048
     Dates: start: 20110101, end: 20111101
  7. ATARAX [Concomitant]
     Dosage: 25 MG, 1X/DAY
     Dates: start: 20060826
  8. AMITRIPTYLINE HCL [Concomitant]
     Dosage: 25 MG, 1X/DAY
     Dates: start: 20060117
  9. FERROUS FUMARATE [Concomitant]
     Dosage: 305 MG, 1X/DAY
     Dates: start: 20060627, end: 20071221
  10. CLARITHROMYCIN [Concomitant]
     Dosage: 200 MG, 2X/DAY
     Dates: start: 20060818, end: 20071221
  11. BLOSTAR M [Concomitant]
     Dosage: 20 MG, 1X/DAY
     Dates: start: 20060822, end: 20111227

REACTIONS (2)
  - SQUAMOUS CELL CARCINOMA [None]
  - PHOTOSENSITIVITY REACTION [None]
